FAERS Safety Report 25500029 (Version 1)
Quarter: 2025Q3

REPORT INFORMATION
  Report Type: Spontaneous
  Country: US (occurrence: None)
  Receive Date: 20250701
  Receipt Date: 20250701
  Transmission Date: 20251021
  Serious: Yes (Death)
  Sender: FDA-CTU
  Company Number: None

PATIENT
  Age: 91 Year
  Sex: Male

DRUGS (18)
  1. COLLAGENASE SANTYL [Suspect]
     Active Substance: COLLAGENASE CLOSTRIDIUM HISTOLYTICUM
     Dates: start: 20250512
  2. TOLVAPTAN [Concomitant]
     Active Substance: TOLVAPTAN
  3. ENTRESETO [Concomitant]
  4. ALBUTEROL [Concomitant]
     Active Substance: ALBUTEROL
  5. ALBUTEROL HFA INH [Concomitant]
  6. CARVEDILOL [Concomitant]
     Active Substance: CARVEDILOL
  7. DILTIAZEM [Concomitant]
     Active Substance: DILTIAZEM
  8. FUROSEMIDE [Concomitant]
     Active Substance: FUROSEMIDE
  9. GLIMEPIRIDE [Concomitant]
     Active Substance: GLIMEPIRIDE
  10. MONTELUKAST [Concomitant]
     Active Substance: MONTELUKAST
  11. PANTOPRAZOLE [Concomitant]
     Active Substance: PANTOPRAZOLE
  12. PRAVASTATIN [Concomitant]
     Active Substance: PRAVASTATIN
  13. TAMSULOSIN [Concomitant]
     Active Substance: TAMSULOSIN
  14. TOLVAPTAN [Concomitant]
     Active Substance: TOLVAPTAN
  15. TRADJENTA [Concomitant]
     Active Substance: LINAGLIPTIN
  16. VITAMIN D2 RX [Concomitant]
  17. WARFARIN SODIUM [Concomitant]
     Active Substance: WARFARIN SODIUM
  18. VITAMIN B-COMPLEX [Concomitant]
     Active Substance: DEXPANTHENOL\NIACINAMIDE\PYRIDOXINE HYDROCHLORIDE\RIBOFLAVIN 5^-PHOSPHATE SODIUM\THIAMINE HYDROCHLOR

REACTIONS (1)
  - Death [None]
